FAERS Safety Report 4414648-1 (Version None)
Quarter: 2004Q3

REPORT INFORMATION
  Report Type: 
  Country: None (occurrence: None)
  Receive Date: 20040729
  Receipt Date: 20040723
  Transmission Date: 20050211
  Serious: Yes (Hospitalization, Other)
  Sender: FDA-Public Use
  Company Number: 200412707BCC

PATIENT
  Age: 39 Year
  Sex: Male
  Weight: 97.5234 kg

DRUGS (1)
  1. ALKA-SELTZER PLUS COLD [Suspect]
     Indication: NASOPHARYNGITIS
     Dosage: 650 MG, ORAL
     Route: 048
     Dates: start: 19971101

REACTIONS (4)
  - BLINDNESS UNILATERAL [None]
  - EYE IRRITATION [None]
  - RETINAL VASCULAR THROMBOSIS [None]
  - THROMBOSIS [None]
